FAERS Safety Report 8997322 (Version 1)
Quarter: 2013Q1

REPORT INFORMATION
  Report Type: Spontaneous
  Country: US (occurrence: US)
  Receive Date: 20130104
  Receipt Date: 20130104
  Transmission Date: 20140127
  Serious: No
  Sender: FDA-Public Use
  Company Number: US-009507513-1301USA001494

PATIENT
  Age: 60 Year
  Sex: Female
  Weight: 74.83 kg

DRUGS (2)
  1. CLARITIN [Suspect]
     Indication: COUGH
     Dosage: 10 MG, BID
     Route: 048
     Dates: start: 20121208
  2. CLARITIN [Suspect]
     Indication: RHINORRHOEA

REACTIONS (2)
  - Overdose [Not Recovered/Not Resolved]
  - No adverse event [Unknown]
